FAERS Safety Report 7439390-4 (Version None)
Quarter: 2011Q2

REPORT INFORMATION
  Report Type: 
  Country: None (occurrence: None)
  Receive Date: 20110421
  Receipt Date: 20110421
  Transmission Date: 20111010
  Serious: Yes (Life-Threatening, Hospitalization)
  Sender: FDA-Public Use
  Company Number: None

PATIENT
  Age: 49 Year
  Sex: Female

DRUGS (2)
  1. ZELNORM [Suspect]
     Indication: ABDOMINAL DISTENSION
  2. ZELNORM [Suspect]
     Indication: CONSTIPATION

REACTIONS (6)
  - URINARY TRACT INFECTION [None]
  - ABDOMINAL DISTENSION [None]
  - IRRITABLE BOWEL SYNDROME [None]
  - SUBCUTANEOUS ABSCESS [None]
  - BREAST CANCER [None]
  - CYST [None]
